FAERS Safety Report 16313058 (Version 1)
Quarter: 2019Q2

REPORT INFORMATION
  Report Type: Spontaneous
  Country: US (occurrence: US)
  Receive Date: 20190515
  Receipt Date: 20190515
  Transmission Date: 20190711
  Serious: No
  Sender: FDA-Public Use
  Company Number: US-B.I. PHARMACEUTICALS,INC./RIDGEFIELD-2019-BI-021147

PATIENT
  Age: 75 Year
  Sex: Male

DRUGS (2)
  1. JARDIANCE [Suspect]
     Active Substance: EMPAGLIFLOZIN
     Indication: TYPE 2 DIABETES MELLITUS
     Dosage: 1 TABLET DAILY;  FORM STRENGTH: 10 MG; FORMULATION: TABLET NR(NOT REPORTED) ?DRUG WITHDRAWN
     Route: 048
     Dates: start: 20190502, end: 20190508
  2. TRADJENTA [Suspect]
     Active Substance: LINAGLIPTIN
     Indication: TYPE 2 DIABETES MELLITUS
     Dosage: 1 TABLET DAILY;  FORM STRENGTH: 5 MG; FORMULATION: TABLET? NR(NOT REPORTED) ?DRUG WITHDRAWN
     Route: 048
     Dates: start: 20190502, end: 20190508

REACTIONS (4)
  - Swollen tongue [Recovered/Resolved]
  - Ear pain [Not Recovered/Not Resolved]
  - Epistaxis [Recovered/Resolved]
  - Pharyngeal swelling [Recovered/Resolved]

NARRATIVE: CASE EVENT DATE: 20190504
